FAERS Safety Report 21445052 (Version 2)
Quarter: 2022Q4

REPORT INFORMATION
  Report Type: Spontaneous
  Country: US (occurrence: US)
  Receive Date: 20221012
  Receipt Date: 20221026
  Transmission Date: 20230113
  Serious: Yes (Hospitalization)
  Sender: FDA-Public Use
  Company Number: US-CIPLA LTD.-2022US05931

PATIENT
  Sex: Male

DRUGS (15)
  1. DICLOFENAC [Suspect]
     Active Substance: DICLOFENAC
     Indication: Arthralgia
     Dosage: 4 GRAM, BID
     Route: 061
     Dates: start: 202208, end: 202209
  2. HUMULINE [Concomitant]
     Indication: Pancreatitis acute
     Dosage: 70/30 14 UNITS IN THE MORNING AND 18 UNITS IN THE EVENING, BID
     Route: 065
     Dates: start: 1985
  3. METFORMIN [Concomitant]
     Active Substance: METFORMIN HYDROCHLORIDE
     Indication: Product used for unknown indication
     Dosage: 1000 MILLIGRAM, QD (ONCE A DAY)
     Route: 065
  4. ACTOS [Concomitant]
     Active Substance: PIOGLITAZONE HYDROCHLORIDE
     Indication: Product used for unknown indication
     Dosage: 30 MILLIGRAM, QD (ONCE A DAY)
     Route: 065
  5. CARVEDILOL [Concomitant]
     Active Substance: CARVEDILOL
     Indication: Product used for unknown indication
     Dosage: 6.25 MG 2 DAILY
     Route: 065
  6. AMLODIPINE [Concomitant]
     Active Substance: AMLODIPINE BESYLATE
     Indication: Product used for unknown indication
     Dosage: 5 MILLIGRAM, QD (ONE DAILY)
     Route: 065
  7. BENAZEPRIL [Concomitant]
     Active Substance: BENAZEPRIL HYDROCHLORIDE
     Indication: Product used for unknown indication
     Dosage: 20 MG 2 DAILY
     Route: 065
  8. SIMVASTATIN [Concomitant]
     Active Substance: SIMVASTATIN
     Indication: Product used for unknown indication
     Dosage: 20 MILLIGRAM, QD (1 DAILY)
     Route: 065
  9. TAMSULOSIN [Concomitant]
     Active Substance: TAMSULOSIN
     Indication: Product used for unknown indication
     Dosage: 0.4 MG 2 DAILY
     Route: 065
  10. ELMIRON [Concomitant]
     Active Substance: PENTOSAN POLYSULFATE SODIUM
     Indication: Product used for unknown indication
     Dosage: 200 MILLIGRAM, BID (100 MG 2 IN MORNING 2 AT NIGHT)
     Route: 065
  11. CYANOCOBALAMIN [Concomitant]
     Active Substance: CYANOCOBALAMIN
     Indication: Product used for unknown indication
     Dosage: 1000 MICROGRAM, QD (ONE A DAY)
     Route: 065
  12. FOLIC ACID [Concomitant]
     Active Substance: FOLIC ACID
     Indication: Product used for unknown indication
     Dosage: 1000 MICROGRAM, QD (ONE A DAY)
     Route: 065
  13. ALOEVERA EXTRA [Concomitant]
     Indication: Product used for unknown indication
     Dosage: 4 CAPSULE AT MORNING AND 5 CAPSULE AT NIGHT
     Route: 065
  14. ZINC [Concomitant]
     Active Substance: ZINC
     Indication: Product used for unknown indication
     Dosage: 0.5 MILLIGRAM, QD (ONCE A DAY)
     Route: 065
  15. VITAMIN D3 [Concomitant]
     Active Substance: CHOLECALCIFEROL
     Indication: Product used for unknown indication
     Dosage: UNK, QD (2000 ONCE A DAY) (UNITS UNSPECIFIED)
     Route: 065

REACTIONS (6)
  - Dizziness [Not Recovered/Not Resolved]
  - Arthralgia [Unknown]
  - Vertigo [Unknown]
  - Treatment noncompliance [Unknown]
  - Inappropriate schedule of product administration [Unknown]
  - Overdose [Unknown]

NARRATIVE: CASE EVENT DATE: 20220101
